FAERS Safety Report 20240215 (Version 2)
Quarter: 2021Q4

REPORT INFORMATION
  Report Type: Report from Study
  Country: FR (occurrence: None)
  Receive Date: 20211228
  Receipt Date: 20211230
  Transmission Date: 20220303
  Serious: No
  Sender: FDA-Public Use
  Company Number: FR-Eisai Medical Research-EC-2021-105782

PATIENT
  Age: 68 Year
  Sex: Male
  Weight: 115 kg

DRUGS (9)
  1. LENVATINIB [Suspect]
     Active Substance: LENVATINIB
     Indication: Clear cell renal cell carcinoma
     Route: 048
     Dates: start: 20211129
  2. BELZUTIFAN [Suspect]
     Active Substance: BELZUTIFAN
     Indication: Clear cell renal cell carcinoma
     Route: 048
     Dates: start: 20211129
  3. PEMBROLIZUMAB [Suspect]
     Active Substance: PEMBROLIZUMAB
     Indication: Clear cell renal cell carcinoma
     Dosage: 400 MILLIGRAM (ALSO REPORTED AS 100 MG)
     Route: 042
     Dates: start: 20211129, end: 20211129
  4. HYZAAR [Concomitant]
     Active Substance: HYDROCHLOROTHIAZIDE\LOSARTAN POTASSIUM
     Dates: start: 200601
  5. FEBUXOSTAT [Concomitant]
     Active Substance: FEBUXOSTAT
     Dates: start: 200601
  6. FLECAINIDE ACETATE [Concomitant]
     Active Substance: FLECAINIDE ACETATE
     Dates: start: 201101
  7. SILODOSIN [Concomitant]
     Active Substance: SILODOSIN
     Dates: start: 202101
  8. TADALAFIL [Concomitant]
     Active Substance: TADALAFIL
     Dates: start: 20211025
  9. FLUOROURACIL [Concomitant]
     Active Substance: FLUOROURACIL
     Dates: start: 20211130

REACTIONS (1)
  - Back pain [Not Recovered/Not Resolved]

NARRATIVE: CASE EVENT DATE: 20211204
